FAERS Safety Report 7239426-X (Version None)
Quarter: 2011Q1

REPORT INFORMATION
  Report Type: 
  Country: None (occurrence: None)
  Receive Date: 20110121
  Receipt Date: 20110111
  Transmission Date: 20110831
  Serious: Yes (Other)
  Sender: FDA-Public Use
  Company Number: PHHO2010US16308

PATIENT
  Sex: Female
  Weight: 51.8 kg

DRUGS (17)
  1. ZOVIRAX [Concomitant]
     Indication: HERPES ZOSTER
  2. STEROIDS NOS [Concomitant]
     Indication: ACANTHOMA
     Dosage: UNK
     Dates: start: 20090921, end: 20091015
  3. HYDROCHLOROTHIAZIDE [Concomitant]
     Indication: HYPERTENSION
     Dosage: UNK
     Dates: start: 20100201
  4. XANAX [Concomitant]
     Indication: ANXIETY
     Dosage: UNK
     Dates: start: 20100810
  5. FTY 720 [Suspect]
     Indication: MULTIPLE SCLEROSIS
     Dosage: 0.5MG
     Route: 048
     Dates: start: 20080909, end: 20100507
  6. ASCORBIC ACID [Concomitant]
     Dosage: UNK
     Dates: start: 20090130
  7. LYRICA [Concomitant]
     Indication: HERPES ZOSTER
     Dosage: UNK
     Dates: start: 20100520
  8. CITRICAL [Concomitant]
     Dosage: UNK
     Dates: start: 20090130
  9. DEXAMETHASONE [Concomitant]
     Indication: HERPES ZOSTER
     Dosage: UNK
     Dates: start: 20100507
  10. PREDNISONE [Concomitant]
     Indication: BACK PAIN
     Dosage: UNK
     Dates: start: 20100505, end: 20100507
  11. LEXAPRO [Concomitant]
     Indication: DEPRESSION
     Dosage: UNK
     Dates: start: 20100810
  12. VICODIN [Concomitant]
     Indication: HERPES ZOSTER
     Dosage: UNK
     Dates: start: 20100507
  13. DIOVAN [Concomitant]
     Indication: HYPERTENSION
     Dosage: UNK
     Dates: start: 20090814, end: 20100131
  14. AMBIEN [Concomitant]
     Indication: STRESS
     Dosage: UNK
     Dates: start: 20100225
  15. VITAMIN E [Concomitant]
     Dosage: UNK
     Dates: start: 20090130
  16. VITAMIN B COMPLEX CAP [Concomitant]
     Dosage: UNK
     Dates: start: 20090130
  17. AMOXICILLIN [Concomitant]
     Indication: TOOTH EXTRACTION
     Dosage: UNK
     Dates: start: 20090130, end: 20090210

REACTIONS (12)
  - PLEURAL FIBROSIS [None]
  - CRYPTOCOCCOSIS [None]
  - PNEUMOTHORAX [None]
  - TOOTH ABSCESS [None]
  - ENDODONTIC PROCEDURE [None]
  - LUNG HYPERINFLATION [None]
  - LUNG DISORDER [None]
  - LOWER RESPIRATORY TRACT INFECTION FUNGAL [None]
  - INFECTION [None]
  - LUNG INFILTRATION [None]
  - PULMONARY CAVITATION [None]
  - POST PROCEDURAL COMPLICATION [None]
